FAERS Safety Report 7329169-6 (Version None)
Quarter: 2011Q1

REPORT INFORMATION
  Report Type: 
  Country: None (occurrence: None)
  Receive Date: 20110303
  Receipt Date: 20110224
  Transmission Date: 20110831
  Serious: Yes (Other)
  Sender: FDA-Public Use
  Company Number: A0849266A

PATIENT
  Sex: Male

DRUGS (8)
  1. HYDROCHLOROTHIAZIDE [Concomitant]
  2. LISINOPRIL [Concomitant]
  3. GLUCOPHAGE [Concomitant]
  4. GEMFIBROZIL [Concomitant]
  5. AVANDIA [Suspect]
     Indication: DIABETES MELLITUS
     Dosage: 4MG PER DAY
     Route: 048
     Dates: start: 20011001
  6. HYZAAR [Concomitant]
  7. PRILOSEC [Concomitant]
  8. XENICAL [Concomitant]

REACTIONS (1)
  - MYOCARDIAL INFARCTION [None]
